FAERS Safety Report 6256320-1 (Version None)
Quarter: 2009Q2

REPORT INFORMATION
  Report Type: 
  Country: None (occurrence: None)
  Receive Date: 20090630
  Receipt Date: 20090630
  Transmission Date: 20091009
  Serious: Yes (Life-Threatening, Hospitalization)
  Sender: FDA-Public Use
  Company Number: None

PATIENT
  Sex: Male
  Weight: 108.8633 kg

DRUGS (2)
  1. CHANTIX [Suspect]
     Indication: SMOKING CESSATION THERAPY
     Dosage: .5 FIRST WEEK PO 1 MG SECOND WEEK PO
     Route: 048
     Dates: start: 20090427, end: 20090503
  2. CHANTIX [Suspect]
     Indication: SMOKING CESSATION THERAPY
     Dosage: .5 FIRST WEEK PO 1 MG SECOND WEEK PO
     Route: 048
     Dates: start: 20090504, end: 20090504

REACTIONS (5)
  - FOOT FRACTURE [None]
  - HAND FRACTURE [None]
  - HIP FRACTURE [None]
  - LOSS OF CONSCIOUSNESS [None]
  - LOWER LIMB FRACTURE [None]
